FAERS Safety Report 23143032 (Version 1)
Quarter: 2023Q4

REPORT INFORMATION
  Report Type: Spontaneous
  Country: US (occurrence: US)
  Receive Date: 20231103
  Receipt Date: 20231103
  Transmission Date: 20240109
  Serious: Yes (Hospitalization)
  Sender: FDA-Public Use
  Company Number: US-GLAXOSMITHKLINE-US2023AMR150749

PATIENT

DRUGS (2)
  1. BENLYSTA [Suspect]
     Active Substance: BELIMUMAB
     Indication: Systemic lupus erythematosus
     Dosage: UNK
     Dates: start: 20231013, end: 20231013
  2. METFORMIN CHLOROPHENOXYACETATE [Concomitant]
     Indication: Diabetes mellitus
     Dosage: 1000 MG

REACTIONS (2)
  - Ill-defined disorder [Recovered/Resolved]
  - Patient elopement [Unknown]

NARRATIVE: CASE EVENT DATE: 20231013
